FAERS Safety Report 6884604-2 (Version None)
Quarter: 2010Q3

REPORT INFORMATION
  Report Type: 
  Country: None (occurrence: None)
  Receive Date: 20100729
  Receipt Date: 20070802
  Transmission Date: 20110219
  Serious: No
  Sender: FDA-Public Use
  Company Number: US-PFIZER INC-2007061860

PATIENT
  Age: 85 Year
  Sex: Male
  Weight: 74.84 kg

DRUGS (5)
  1. CELEBREX [Suspect]
  2. ZOCOR [Concomitant]
  3. ZOLOFT [Concomitant]
  4. TAMSULOSIN HYDROCHLORIDE [Concomitant]
  5. IBUPROFEN TABLETS [Concomitant]

REACTIONS (1)
  - DRUG INEFFECTIVE [None]
